FAERS Safety Report 9852919 (Version 1)
Quarter: 2014Q1

REPORT INFORMATION
  Report Type: Spontaneous
  Country: CA (occurrence: None)
  Receive Date: 20140127
  Receipt Date: 20140127
  Transmission Date: 20141002
  Serious: Yes (Other)
  Sender: FDA-Public Use
  Company Number: 2014012736

PATIENT
  Age: 37 Year
  Sex: Female

DRUGS (6)
  1. FRAGMIN [Suspect]
  2. AVASTIN (BEVACIZUMAB) [Suspect]
     Indication: OVARIAN CANCER
     Route: 042
     Dates: start: 20130725
  3. PANTOPRAZOLE (PANTOPRAZOLE) [Concomitant]
  4. IMOVANE (ZOPICLONE) [Concomitant]
  5. ATIVAN (LORAZEPAM) [Concomitant]
  6. ACETAMINOPHEN (PARACETAMOL) [Concomitant]

REACTIONS (1)
  - Injection site infection [None]
